FAERS Safety Report 15009948 (Version 2)
Quarter: 2018Q3

REPORT INFORMATION
  Report Type: Spontaneous
  Country: US (occurrence: US)
  Receive Date: 20180614
  Receipt Date: 20180702
  Transmission Date: 20181010
  Serious: No
  Sender: FDA-Public Use
  Company Number: US-ASTRAZENECA-2018SE73811

PATIENT
  Age: 925 Month
  Sex: Female
  Weight: 90.7 kg

DRUGS (18)
  1. ALBUTEROL. [Concomitant]
     Active Substance: ALBUTEROL
  2. MONTELUKAST [Concomitant]
     Active Substance: MONTELUKAST SODIUM
  3. TUDORZA PRESSAIR [Suspect]
     Active Substance: ACLIDINIUM BROMIDE
     Indication: CHRONIC OBSTRUCTIVE PULMONARY DISEASE
     Dosage: 400 MCG, ONE PUFF, TWO TIMES A DAY
     Route: 055
     Dates: start: 201805
  4. BUDESONIDE. [Suspect]
     Active Substance: BUDESONIDE
     Route: 055
  5. PROLIA [Concomitant]
     Active Substance: DENOSUMAB
  6. SULFAMETHOXAZOLE [Concomitant]
     Active Substance: SULFAMETHOXAZOLE
     Dosage: TWO TIMES A DAY
  7. TUDORZA PRESSAIR [Suspect]
     Active Substance: ACLIDINIUM BROMIDE
     Indication: ASTHMA EXERCISE INDUCED
     Dosage: 400 MCG, ONE PUFF, TWO TIMES A DAY
     Route: 055
     Dates: start: 201805
  8. LOSARTAN. [Concomitant]
     Active Substance: LOSARTAN
  9. PREDNISONE. [Concomitant]
     Active Substance: PREDNISONE
  10. BROVANA [Concomitant]
     Active Substance: ARFORMOTEROL TARTRATE
  11. LEVOTHYROXINE. [Concomitant]
     Active Substance: LEVOTHYROXINE
     Route: 048
  12. XOLAIR [Concomitant]
     Active Substance: OMALIZUMAB
  13. FLUTICASONE. [Concomitant]
     Active Substance: FLUTICASONE
     Dosage: 50.0UG AS REQUIRED
  14. MULTIVITAMIN PLUS MINERAL [Concomitant]
     Route: 048
  15. POTASSIUM [Concomitant]
     Active Substance: POTASSIUM
  16. THEOPHYLLINE [Concomitant]
     Active Substance: THEOPHYLLINE ANHYDROUS
  17. VITAMIN D3 [Concomitant]
     Active Substance: CHOLECALCIFEROL
     Dosage: DAILY
  18. CALCIUM PLUS D3 [Concomitant]
     Route: 048

REACTIONS (6)
  - Device malfunction [Unknown]
  - Off label use [Not Recovered/Not Resolved]
  - Intentional product misuse [Recovered/Resolved]
  - Drug dose omission [Recovered/Resolved]
  - Emphysema [Unknown]
  - Product use in unapproved indication [Not Recovered/Not Resolved]

NARRATIVE: CASE EVENT DATE: 201805
